FAERS Safety Report 20616913 (Version 1)
Quarter: 2022Q1

REPORT INFORMATION
  Report Type: Spontaneous
  Country: JP (occurrence: JP)
  Receive Date: 20220321
  Receipt Date: 20220321
  Transmission Date: 20220424
  Serious: Yes (Hospitalization)
  Sender: FDA-Public Use
  Company Number: JP-FERRINGPH-2022FE01183

PATIENT

DRUGS (1)
  1. DESMOPRESSIN ACETATE [Suspect]
     Active Substance: DESMOPRESSIN ACETATE
     Indication: Nocturia
     Dosage: 12.5 MICROGRAM PER MILLIGRAM, DAILY
     Route: 065

REACTIONS (3)
  - Head injury [Unknown]
  - Accident at home [Unknown]
  - Wrong technique in product usage process [Unknown]
